FAERS Safety Report 19932321 (Version 4)
Quarter: 2022Q1

REPORT INFORMATION
  Report Type: Report from Study
  Country: KR (occurrence: None)
  Receive Date: 20211008
  Receipt Date: 20220322
  Transmission Date: 20220423
  Serious: Yes (Hospitalization)
  Sender: FDA-Public Use
  Company Number: KR-ROCHE-2927612

PATIENT
  Age: 79 Year
  Sex: Male
  Weight: 43.3 kg

DRUGS (3)
  1. ATEZOLIZUMAB [Suspect]
     Active Substance: ATEZOLIZUMAB
     Indication: Oesophageal cancer metastatic
     Dosage: ON 27/SEP/2021, MOST RECENT DOSE OF ATEZOLIZUMAB WAS ADMINISTERED PRIOR TO AE.
     Route: 041
     Dates: start: 20210817
  2. CISPLATIN [Suspect]
     Active Substance: CISPLATIN
     Indication: Oesophageal cancer metastatic
     Dosage: ON 27/SEP/2021, MOST RECENT DOSE OF CISPLATIN (115.2 MG) WAS ADMINISTERED PRIOR TO AE.
     Route: 042
     Dates: start: 20210817
  3. FLUOROURACIL [Suspect]
     Active Substance: FLUOROURACIL
     Indication: Oesophageal cancer metastatic
     Dosage: ON 29/SEP/2021, MOST RECENT DOSE OF 5-FLUOROURACIL (3456 MG) WAS ADMINISTERED PRIOR TO AE.
     Route: 042
     Dates: start: 20210817

REACTIONS (1)
  - Pneumonia [Recovered/Resolved]

NARRATIVE: CASE EVENT DATE: 20210930
